FAERS Safety Report 9929361 (Version 2)
Quarter: 2014Q2

REPORT INFORMATION
  Report Type: Spontaneous
  Country: DE (occurrence: DE)
  Receive Date: 20140227
  Receipt Date: 20140421
  Transmission Date: 20141212
  Serious: Yes (Death, Other)
  Sender: FDA-Public Use
  Company Number: DE-CELGENEUS-062-21880-14022493

PATIENT
  Age: 74 Year
  Sex: Female

DRUGS (2)
  1. REVLIMID [Suspect]
     Indication: PLASMA CELL MYELOMA
     Dosage: 25 MILLIGRAM
     Route: 048
     Dates: start: 20140207, end: 20140214
  2. TILIDIN [Concomitant]
     Indication: PAIN
     Dosage: 50/4
     Route: 065
     Dates: start: 20140114, end: 20140214

REACTIONS (3)
  - Sepsis [Fatal]
  - Pneumonia [Fatal]
  - Leukopenia [Unknown]
